FAERS Safety Report 19181431 (Version 1)
Quarter: 2021Q2

REPORT INFORMATION
  Report Type: Spontaneous
  Country: PL (occurrence: PL)
  Receive Date: 20210426
  Receipt Date: 20210426
  Transmission Date: 20210717
  Serious: Yes (Hospitalization, Other)
  Sender: FDA-Public Use
  Company Number: PL-NOVOPROD-804330

PATIENT

DRUGS (6)
  1. INSULATARD HM [Suspect]
     Active Substance: INSULIN HUMAN
     Indication: TYPE 2 DIABETES MELLITUS
     Dosage: DAILY DOSE INCREASING FROM 16?20 UNITS/DAY IN 1ST TRIMESTER
     Route: 064
  2. INSULATARD HM [Suspect]
     Active Substance: INSULIN HUMAN
     Dosage: INCREASED TO 180?200 UNITS/DAY
     Route: 064
  3. INSULIN ASPART [Suspect]
     Active Substance: INSULIN ASPART
     Dosage: INCREASED TO 180?200 UNITS/DAY
     Route: 064
  4. INSULATARD HM [Suspect]
     Active Substance: INSULIN HUMAN
     Dosage: 106?108 UNITS IN 3RD TRIMESTER
     Route: 064
  5. INSULIN ASPART [Suspect]
     Active Substance: INSULIN ASPART
     Dosage: 102?122 UNITS DAY IN 3RD TRIMESTER
     Route: 064
  6. INSULIN ASPART [Suspect]
     Active Substance: INSULIN ASPART
     Indication: TYPE 2 DIABETES MELLITUS
     Dosage: 2?4 UNITS BEFORE THE MAIN MEALS
     Route: 064

REACTIONS (4)
  - Congenital hypothyroidism [Unknown]
  - Cerebellar hypoplasia [Unknown]
  - Foetal exposure during pregnancy [Not Recovered/Not Resolved]
  - Heart disease congenital [Unknown]
